FAERS Safety Report 7842374-5 (Version None)
Quarter: 2011Q4

REPORT INFORMATION
  Report Type: 
  Country: None (occurrence: None)
  Receive Date: 20111025
  Receipt Date: 20111018
  Transmission Date: 20120403
  Serious: Yes (Death, Life-Threatening, Hospitalization)
  Sender: FDA-Public Use
  Company Number: MX-JNJFOC-20110910122

PATIENT
  Sex: Female
  Weight: 36.8 kg

DRUGS (7)
  1. METOCLOPRAMIDE [Concomitant]
     Indication: PROPHYLAXIS
     Route: 048
     Dates: start: 20091220
  2. PLACEBO [Suspect]
     Route: 042
     Dates: start: 20110316
  3. INDOMETHACIN [Concomitant]
     Indication: RHEUMATOID ARTHRITIS
     Route: 048
     Dates: start: 20101209
  4. GOLIMUMAB [Suspect]
     Route: 042
     Dates: start: 20110316
  5. GOLIMUMAB [Suspect]
     Indication: RHEUMATOID ARTHRITIS
     Route: 042
     Dates: start: 20100901
  6. PLACEBO [Suspect]
     Indication: RHEUMATOID ARTHRITIS
     Route: 042
     Dates: start: 20100901
  7. FOLIC ACID [Concomitant]
     Indication: PROPHYLAXIS
     Route: 048
     Dates: start: 20100816

REACTIONS (3)
  - CARDIO-RESPIRATORY ARREST [None]
  - TUBERCULOSIS [None]
  - SEPSIS [None]
